FAERS Safety Report 24135192 (Version 1)
Quarter: 2024Q3

REPORT INFORMATION
  Report Type: Spontaneous
  Country: GB (occurrence: GB)
  Receive Date: 20240725
  Receipt Date: 20240725
  Transmission Date: 20241017
  Serious: Yes (Hospitalization)
  Sender: TEVA
  Company Number: GB-ROCHE-3102394

PATIENT
  Age: 76 Year
  Sex: Female
  Weight: 65 kg

DRUGS (4)
  1. CARBOPLATIN [Suspect]
     Active Substance: CARBOPLATIN
     Indication: Small cell lung cancer extensive stage
     Dosage: MOST RECENT DOSE OF STUDY DRUG PRIOR TO SAE: 10/MAY/2022, 560MG
     Route: 042
     Dates: start: 20220510
  2. ETOPOSIDE [Suspect]
     Active Substance: ETOPOSIDE
     Indication: Small cell lung cancer extensive stage
     Dosage: ON DAYS 1, 2, AND 3 OF EACH 21-DAY CYCLE?MOST RECENT DOSE OF STUDY DRUG PRIOR TO SAE AND AE: 12/M...
     Route: 048
     Dates: start: 20220510
  3. ATEZOLIZUMAB [Concomitant]
     Active Substance: ATEZOLIZUMAB
     Indication: Small cell lung cancer extensive stage
     Route: 065
  4. ATEZOLIZUMAB [Concomitant]
     Active Substance: ATEZOLIZUMAB
     Indication: Small cell lung cancer extensive stage
     Dosage: MOST RECENT DOSE OF STUDY DRUG PRIOR TO SAE: 10/MAY/2022, 1200MG
     Route: 065
     Dates: start: 20220510

REACTIONS (3)
  - Neutropenic sepsis [Not Recovered/Not Resolved]
  - Acute kidney injury [Not Recovered/Not Resolved]
  - Vomiting [Recovered/Resolved]

NARRATIVE: CASE EVENT DATE: 20220519
